FAERS Safety Report 6043694-X (Version None)
Quarter: 2009Q1

REPORT INFORMATION
  Report Type: 
  Country: None (occurrence: None)
  Receive Date: 20090120
  Receipt Date: 20090113
  Transmission Date: 20090719
  Serious: Yes (Death)
  Sender: FDA-Public Use
  Company Number: US-BRISTOL-MYERS SQUIBB COMPANY-14470389

PATIENT
  Age: 40 Year
  Sex: Female

DRUGS (6)
  1. ATAZANAVIR [Suspect]
     Route: 048
  2. DIDANOSINE [Suspect]
     Route: 048
  3. TRIMETHOPRIM + SULFAMETHOXAZOLE [Suspect]
     Route: 048
  4. APAP+BUTALBITAL+CAFFEINE [Suspect]
     Route: 048
  5. RITONAVIR [Suspect]
     Route: 048
  6. TENOFOVIR DF + EMTRICITABINE [Suspect]
     Route: 048

REACTIONS (1)
  - COMPLETED SUICIDE [None]
